FAERS Safety Report 9300593 (Version 2)
Quarter: 2014Q1

REPORT INFORMATION
  Report Type: Report from Study
  Country: US (occurrence: US)
  Receive Date: 20130107
  Receipt Date: 20140326
  Transmission Date: 20141002
  Serious: Yes (Life-Threatening)
  Sender: FDA-Public Use
  Company Number: PHEH2012US020496

PATIENT
  Age: 35 Year
  Sex: Female
  Weight: 102.4 kg

DRUGS (11)
  1. GILENYA [Suspect]
     Indication: RELAPSING-REMITTING MULTIPLE SCLEROSIS
     Dosage: 0.5 MG, QD
     Route: 048
     Dates: start: 20110719
  2. GILENYA [Suspect]
     Dosage: 0.5 MG, QOD
     Route: 048
     Dates: end: 201301
  3. GILENYA [Suspect]
     Dosage: 0.5 UKN, UNK
     Route: 048
     Dates: start: 201304, end: 201306
  4. BACLOFEN [Concomitant]
     Dosage: 29 MG, UNK
  5. ABILIFY [Concomitant]
     Dosage: 5 MG, UNK
  6. ESKALITH [Concomitant]
     Dosage: 300 MG, UNK
     Route: 048
  7. GEODON [Concomitant]
     Dosage: 80 MG, UNK
     Route: 048
  8. LAMICTAL [Concomitant]
     Dosage: 200 MG, UNK
     Route: 048
  9. VESICARE [Concomitant]
     Dosage: 10 MG, UNK
     Route: 048
  10. WELLBUTRIN XL [Concomitant]
     Dosage: 300 MG, UNK
  11. YAZ [Concomitant]

REACTIONS (28)
  - Suicide attempt [Unknown]
  - Extrapyramidal disorder [Unknown]
  - Dyskinesia [Recovered/Resolved]
  - Tremor [Unknown]
  - Muscle tightness [Unknown]
  - Muscular weakness [Unknown]
  - Neutrophil percentage increased [Unknown]
  - Urine abnormality [Unknown]
  - Pain in extremity [Unknown]
  - Fatigue [Unknown]
  - Visual impairment [Unknown]
  - Vision blurred [Unknown]
  - Hypoaesthesia [Unknown]
  - Paraesthesia [Unknown]
  - Blood pressure decreased [Unknown]
  - Muscle spasms [Unknown]
  - Weight decreased [Unknown]
  - Incontinence [Unknown]
  - Disturbance in attention [Unknown]
  - Memory impairment [Unknown]
  - Speech disorder [Unknown]
  - Sensory loss [Unknown]
  - Gait disturbance [Unknown]
  - Anxiety [Unknown]
  - Depression [Unknown]
  - Lymphocyte count decreased [Unknown]
  - Cough [Unknown]
  - Headache [Unknown]
